FAERS Safety Report 9341235 (Version 1)
Quarter: 2013Q2

REPORT INFORMATION
  Report Type: Spontaneous
  Country: FR (occurrence: FR)
  Receive Date: 20130611
  Receipt Date: 20130611
  Transmission Date: 20140414
  Serious: Yes (Death, Other)
  Sender: FDA-Public Use
  Company Number: FR-ROCHE-1208181

PATIENT
  Sex: Female

DRUGS (4)
  1. ZELBORAF [Suspect]
     Indication: METASTATIC MALIGNANT MELANOMA
     Dates: start: 201302
  2. CORTANCYL [Concomitant]
  3. OMEPRAZOLE [Concomitant]
  4. LOXEN [Concomitant]

REACTIONS (4)
  - Squamous cell carcinoma of skin [Recovered/Resolved]
  - Nausea [Not Recovered/Not Resolved]
  - Vomiting [Not Recovered/Not Resolved]
  - Death [Fatal]
